FAERS Safety Report 4582222-2 (Version None)
Quarter: 2005Q1

REPORT INFORMATION
  Report Type: 
  Country: None (occurrence: None)
  Receive Date: 20050214
  Receipt Date: 20050201
  Transmission Date: 20050727
  Serious: Yes (Hospitalization)
  Sender: FDA-Public Use
  Company Number: GXKR2005IT00535

PATIENT
  Age: 65 Year
  Sex: Male

DRUGS (8)
  1. TICLOPIDINE (NGX) (TICLOPIDINE) [Suspect]
     Indication: ANTICOAGULANT THERAPY
     Dates: start: 19991101, end: 19991222
  2. NITRATES (NITRATES) [Concomitant]
  3. METOPROLOL TARTRATE [Concomitant]
  4. RAMIPRIL [Concomitant]
  5. AMLODIPINE [Concomitant]
  6. ACETYLSALICYLIC ACID SRT [Concomitant]
  7. VALSARTAN (VALSARTAN) [Concomitant]
  8. DOXAZOSIN MESYLATE [Concomitant]

REACTIONS (9)
  - ALANINE AMINOTRANSFERASE INCREASED [None]
  - ASPARTATE AMINOTRANSFERASE INCREASED [None]
  - BILIRUBIN CONJUGATED INCREASED [None]
  - BLOOD BILIRUBIN INCREASED [None]
  - CHOLESTASIS [None]
  - GAMMA-GLUTAMYLTRANSFERASE INCREASED [None]
  - HEPATOCELLULAR DAMAGE [None]
  - JAUNDICE CHOLESTATIC [None]
  - PRURITUS [None]
